FAERS Safety Report 10518272 (Version 2)
Quarter: 2014Q4

REPORT INFORMATION
  Report Type: Spontaneous
  Country: PL (occurrence: PL)
  Receive Date: 20141015
  Receipt Date: 20141028
  Transmission Date: 20150528
  Serious: Yes (Hospitalization)
  Sender: FDA-Public Use
  Company Number: PL-ROCHE-1473897

PATIENT
  Sex: Female

DRUGS (12)
  1. AMLODIPINE [Concomitant]
     Active Substance: AMLODIPINE BESYLATE
  2. NEDAL [Concomitant]
  3. SPIRONOL [Concomitant]
     Active Substance: SPIRONOLACTONE
  4. CALPEROS [Concomitant]
     Active Substance: CALCIUM CARBONATE
  5. PREDNISONE. [Concomitant]
     Active Substance: PREDNISONE
  6. METYPRED [Concomitant]
     Active Substance: METHYLPREDNISOLONE
  7. ANESTELOC [Concomitant]
     Active Substance: PANTOPRAZOLE SODIUM
  8. POLPRIL [Concomitant]
     Active Substance: RAMIPRIL
  9. MABTHERA [Suspect]
     Active Substance: RITUXIMAB
     Indication: CHRONIC LYMPHOCYTIC LEUKAEMIA
     Route: 065
     Dates: start: 201112
  10. POLOCARD [Concomitant]
     Active Substance: ASPIRIN
  11. CYCLOPHOSPHAMIDE. [Concomitant]
     Active Substance: CYCLOPHOSPHAMIDE
  12. DIUVER [Concomitant]
     Active Substance: TORSEMIDE

REACTIONS (5)
  - Disease progression [Unknown]
  - Glomerulonephritis chronic [Unknown]
  - Chronic kidney disease [Unknown]
  - Venous thrombosis [Unknown]
  - Hypertension [Unknown]

NARRATIVE: CASE EVENT DATE: 201403
